FAERS Safety Report 7092316-8 (Version None)
Quarter: 2010Q4

REPORT INFORMATION
  Report Type: 
  Country: None (occurrence: None)
  Receive Date: 20101109
  Receipt Date: 20101104
  Transmission Date: 20110411
  Serious: Yes (Hospitalization, Other)
  Sender: FDA-Public Use
  Company Number: US-BRISTOL-MYERS SQUIBB COMPANY-15369200

PATIENT
  Age: 63 Year
  Sex: Male
  Weight: 109 kg

DRUGS (4)
  1. ERBITUX [Suspect]
     Indication: NON-SMALL CELL LUNG CANCER
     Dosage: LAST DOSE ON 12OCT10
     Dates: start: 20100727
  2. CARBOPLATIN [Suspect]
     Indication: NON-SMALL CELL LUNG CANCER
     Dosage: LAST DOSE ON 12OCT10
     Dates: start: 20100727
  3. TAXOL [Suspect]
     Indication: NON-SMALL CELL LUNG CANCER
     Dosage: LAST DOSE ON 12OCT10
     Dates: start: 20100727
  4. RADIATION THERAPY [Suspect]
     Indication: NON-SMALL CELL LUNG CANCER
     Dosage: 1 DF = 74 GY NO OF FRACTION: 37 NO OF ELAP DAY: 52 EXTERNAL BEAM,IMRT
     Dates: start: 20100727, end: 20100923

REACTIONS (11)
  - DECREASED APPETITE [None]
  - DYSPHAGIA [None]
  - ENTEROCOLITIS INFECTIOUS [None]
  - FATIGUE [None]
  - GINGIVAL INFECTION [None]
  - GRANULOCYTE COUNT DECREASED [None]
  - HAEMOGLOBIN DECREASED [None]
  - PENILE INFECTION [None]
  - PLATELET COUNT DECREASED [None]
  - URINARY RETENTION [None]
  - WHITE BLOOD CELL COUNT DECREASED [None]
